FAERS Safety Report 4482602-X (Version None)
Quarter: 2004Q4

REPORT INFORMATION
  Report Type: 
  Country: None (occurrence: None)
  Receive Date: 20041022
  Receipt Date: 20041012
  Transmission Date: 20050328
  Serious: Yes (Other)
  Sender: FDA-Public Use
  Company Number: JP-JNJFOC-20040703247

PATIENT
  Age: 68 Year
  Sex: Female

DRUGS (3)
  1. ITRACONAZOLE [Suspect]
     Indication: ONYCHOMYCOSIS
     Route: 049
  2. AMLODIPINE BESYLATE [Concomitant]
     Route: 065
  3. FLUVASTATIN SODIUM [Concomitant]
     Route: 065

REACTIONS (1)
  - PLATELET COUNT DECREASED [None]
